FAERS Safety Report 14565435 (Version 1)
Quarter: 2018Q1

REPORT INFORMATION
  Report Type: Spontaneous
  Country: US (occurrence: US)
  Receive Date: 20180223
  Receipt Date: 20180223
  Transmission Date: 20180509
  Serious: Yes (Other)
  Sender: FDA-Public Use
  Company Number: US-WEST-WARD PHARMACEUTICALS CORP.-US-H14001-18-01114

PATIENT
  Age: 82 Year
  Sex: Male

DRUGS (2)
  1. DEXAMETHASONE. [Suspect]
     Active Substance: DEXAMETHASONE
     Indication: NEUROMYELITIS OPTICA SPECTRUM DISORDER
     Dosage: 25 MG EVERY 6 H FOLLOWED BY A TAPER FOR 2 DAYS ()
     Route: 042
     Dates: start: 201703
  2. DEXAMETHASONE. [Suspect]
     Active Substance: DEXAMETHASONE
     Indication: NEUROMYELITIS OPTICA SPECTRUM DISORDER
     Dosage: 25 MG EVERY 6 H FOLLOWED BY A TAPER FOR 2 DAYS
     Route: 042

REACTIONS (3)
  - Hallucination [Recovered/Resolved]
  - Agitation [Unknown]
  - Psychotic disorder [Recovered/Resolved]
